FAERS Safety Report 24769022 (Version 1)
Quarter: 2024Q4

REPORT INFORMATION
  Report Type: Spontaneous
  Country: US (occurrence: US)
  Receive Date: 20241224
  Receipt Date: 20241224
  Transmission Date: 20250114
  Serious: Yes (Hospitalization)
  Sender: AMGEN
  Company Number: US-AMGEN-USASP2024248974

PATIENT
  Age: 1 Year
  Sex: Female

DRUGS (2)
  1. RAVICTI [Suspect]
     Active Substance: GLYCEROL PHENYLBUTYRATE
     Indication: Argininosuccinate synthetase deficiency
     Dosage: 0.9 MILLILITER, TID TAKE 0.9 ML BY MOUTH THREE TIMES DAILY WITH MEALS. TOTAL DAILY DOSE IS 2.7 ML. P
     Route: 048
  2. RAVICTI [Suspect]
     Active Substance: GLYCEROL PHENYLBUTYRATE
     Dosage: UNK DOSE INCREASED
     Route: 048
     Dates: start: 202412

REACTIONS (1)
  - Argininosuccinate synthetase deficiency [Unknown]

NARRATIVE: CASE EVENT DATE: 20241201
